FAERS Safety Report 13370551 (Version 1)
Quarter: 2017Q1

REPORT INFORMATION
  Report Type: Spontaneous
  Country: US (occurrence: US)
  Receive Date: 20170324
  Receipt Date: 20170324
  Transmission Date: 20170429
  Serious: No
  Sender: FDA-Public Use
  Company Number: US-ROCHE-1025924

PATIENT
  Sex: Female
  Weight: 72 kg

DRUGS (7)
  1. SINGULAIR [Concomitant]
     Active Substance: MONTELUKAST SODIUM
  2. PROZAC [Concomitant]
     Active Substance: FLUOXETINE HYDROCHLORIDE
  3. PREDNISONE. [Concomitant]
     Active Substance: PREDNISONE
  4. ALVESCO [Concomitant]
     Active Substance: CICLESONIDE
  5. XOLAIR [Suspect]
     Active Substance: OMALIZUMAB
     Indication: ASTHMA
     Route: 058
     Dates: start: 20111129
  6. SPIRIVA [Concomitant]
     Active Substance: TIOTROPIUM BROMIDE MONOHYDRATE
  7. NASONEX [Concomitant]
     Active Substance: MOMETASONE FUROATE

REACTIONS (5)
  - Pulmonary pain [Recovered/Resolved]
  - Asthma [Recovered/Resolved]
  - Dysphonia [Recovered/Resolved]
  - Chest discomfort [Recovered/Resolved]
  - Abasia [Recovered/Resolved]
